FAERS Safety Report 8825684 (Version 2)
Quarter: 2016Q3

REPORT INFORMATION
  Report Type: Spontaneous
  Country: US (occurrence: US)
  Receive Date: 20121004
  Receipt Date: 20160916
  Transmission Date: 20161109
  Serious: Yes (Hospitalization, Other)
  Sender: FDA-Public Use
  Company Number: US-ASTRAZENECA-2012SE74648

PATIENT
  Age: 832 Month
  Sex: Male
  Weight: 87.5 kg

DRUGS (9)
  1. CRESTOR [Suspect]
     Active Substance: ROSUVASTATIN CALCIUM
     Route: 048
  2. MONTELUKAST [Concomitant]
     Active Substance: MONTELUKAST SODIUM
     Indication: HYPERTENSION
     Dosage: 10.0MG UNKNOWN
     Route: 048
     Dates: start: 2001
  3. GABAPENTIN. [Concomitant]
     Active Substance: GABAPENTIN
     Indication: NEUROPATHY PERIPHERAL
     Dosage: 800.0MG UNKNOWN
     Route: 048
  4. CLOPIDOGREL [Concomitant]
     Active Substance: CLOPIDOGREL BISULFATE
     Route: 048
  5. SYMBICORT [Suspect]
     Active Substance: BUDESONIDE\FORMOTEROL FUMARATE DIHYDRATE
     Indication: DYSPNOEA
     Dosage: 160/4.5 MCG 2 PUFFS TWICE DAILY
     Route: 055
  6. OMEPRAZOLE. [Suspect]
     Active Substance: OMEPRAZOLE
     Indication: GASTROOESOPHAGEAL REFLUX DISEASE
     Route: 048
  7. LYRICA [Concomitant]
     Active Substance: PREGABALIN
     Indication: BURNING SENSATION
     Route: 048
  8. ROPINIROLE. [Concomitant]
     Active Substance: ROPINIROLE
     Indication: TREMOR
     Route: 048
  9. RANEXA [Concomitant]
     Active Substance: RANOLAZINE
     Indication: DYSPNOEA
     Route: 048

REACTIONS (28)
  - Skin mass [Not Recovered/Not Resolved]
  - Lung disorder [Unknown]
  - Body height decreased [Not Recovered/Not Resolved]
  - Tremor [Not Recovered/Not Resolved]
  - Gastrooesophageal reflux disease [Not Recovered/Not Resolved]
  - Pruritus [Not Recovered/Not Resolved]
  - Insomnia [Unknown]
  - Road traffic accident [Not Recovered/Not Resolved]
  - Cerebrovascular accident [Unknown]
  - Cataract [Unknown]
  - Pulmonary mass [Unknown]
  - Hernia [Unknown]
  - Parkinsonism [Unknown]
  - Pneumonia [Unknown]
  - Glaucoma [Unknown]
  - Fungal infection [Unknown]
  - Neuropathy peripheral [Not Recovered/Not Resolved]
  - Rash generalised [Not Recovered/Not Resolved]
  - Myocardial infarction [Unknown]
  - Blood pressure decreased [Unknown]
  - H1N1 influenza [Unknown]
  - Hiatus hernia [Unknown]
  - Increased tendency to bruise [Not Recovered/Not Resolved]
  - Rectal discharge [Unknown]
  - Coma [Unknown]
  - Haemorrhoids [Unknown]
  - Fall [Unknown]
  - Polyp [Unknown]

NARRATIVE: CASE EVENT DATE: 201106
